FAERS Safety Report 5801613-2 (Version None)
Quarter: 2008Q2

REPORT INFORMATION
  Report Type: 
  Country: None (occurrence: None)
  Receive Date: 20080626
  Receipt Date: 20071213
  Transmission Date: 20081010
  Serious: Yes (Hospitalization)
  Sender: FDA-Public Use
  Company Number: 536825

PATIENT
  Age: 67 Year
  Sex: Female

DRUGS (6)
  1. XELODA [Suspect]
     Indication: COLON CANCER STAGE IV
  2. PREVACID [Concomitant]
  3. LEVOTHYROXINE SODIUM [Concomitant]
  4. METOPROLOL TARTRATE [Concomitant]
  5. LORAZEPAM [Concomitant]
  6. PROCHLORPERAZINE MALEATE [Concomitant]

REACTIONS (7)
  - DIARRHOEA [None]
  - EATING DISORDER [None]
  - INFLUENZA [None]
  - NAUSEA [None]
  - ORAL INTAKE REDUCED [None]
  - PALMAR-PLANTAR ERYTHRODYSAESTHESIA SYNDROME [None]
  - VOMITING [None]
